FAERS Safety Report 5068388-9 (Version None)
Quarter: 2006Q3

REPORT INFORMATION
  Report Type: 
  Country: None (occurrence: None)
  Receive Date: 20060802
  Receipt Date: 20050901
  Transmission Date: 20061208
  Serious: No
  Sender: FDA-Public Use
  Company Number: US-BRISTOL-MYERS SQUIBB COMPANY-13096748

PATIENT
  Age: 78 Year
  Sex: Male
  Weight: 104 kg

DRUGS (1)
  1. COUMADIN [Suspect]
     Indication: ATRIAL FIBRILLATION
     Dosage: 5MG - LOT # ERE350A, EXP: 06/06  2.5MG - LOT # ERB116A, EXP: 03/06

REACTIONS (1)
  - OCULAR HYPERAEMIA [None]
